FAERS Safety Report 16036047 (Version 1)
Quarter: 2019Q1

REPORT INFORMATION
  Report Type: Spontaneous
  Country: BE (occurrence: BE)
  Receive Date: 20190305
  Receipt Date: 20190305
  Transmission Date: 20190418
  Serious: Yes (Other)
  Sender: FDA-Public Use
  Company Number: BE-HERITAGE PHARMACEUTICALS-2019HTG00060

PATIENT
  Age: 21 Year
  Sex: Female

DRUGS (1)
  1. NIFEDIPINE. [Suspect]
     Active Substance: NIFEDIPINE
     Indication: PREMATURE LABOUR
     Dosage: 10 MG 4 TIMES IN 1 H
     Route: 065

REACTIONS (7)
  - Cardiogenic shock [Recovered/Resolved]
  - Hypoxia [Recovered/Resolved]
  - Metabolic acidosis [Recovered/Resolved]
  - Off label use [Recovered/Resolved]
  - Hyperlactacidaemia [Recovered/Resolved]
  - Exposure during pregnancy [Recovered/Resolved]
  - Pulmonary oedema [Recovered/Resolved]
